FAERS Safety Report 18017098 (Version 1)
Quarter: 2020Q3

REPORT INFORMATION
  Report Type: Spontaneous
  Country: CA (occurrence: CA)
  Receive Date: 20200714
  Receipt Date: 20200714
  Transmission Date: 20201103
  Serious: Yes (Hospitalization, Disabling)
  Sender: FDA-Public Use
  Company Number: CA-PFIZER INC-2020262586

PATIENT
  Age: 15 Year
  Sex: Male
  Weight: 100 kg

DRUGS (5)
  1. ESCITALOPRAM [Concomitant]
     Active Substance: ESCITALOPRAM OXALATE
     Dosage: UNK
     Route: 065
  2. VYVANSE [Concomitant]
     Active Substance: LISDEXAMFETAMINE DIMESYLATE
     Dosage: UNK
     Route: 065
  3. IBUPROFEN. [Suspect]
     Active Substance: IBUPROFEN
     Indication: HEADACHE
     Dosage: 400 MG, 4X/DAY
     Route: 048
  4. RIBOFLAVINE [Concomitant]
     Active Substance: RIBOFLAVIN
     Dosage: UNK
     Route: 065
  5. ACETAMINOPHEN. [Suspect]
     Active Substance: ACETAMINOPHEN
     Indication: HEADACHE
     Dosage: 1000 MG, 4X/DAY(1 EVERY 6 HOURS)
     Route: 048

REACTIONS (12)
  - Panic attack [Unknown]
  - Vomiting [Unknown]
  - Weight increased [Unknown]
  - Chest discomfort [Unknown]
  - Fatigue [Unknown]
  - Dizziness [Unknown]
  - Dyspnoea [Unknown]
  - Headache [Unknown]
  - Middle insomnia [Unknown]
  - Visual impairment [Unknown]
  - Medication overuse headache [Unknown]
  - Nausea [Unknown]
